FAERS Safety Report 9226829 (Version 1)
Quarter: 2013Q1

REPORT INFORMATION
  Report Type: Spontaneous
  Country: US (occurrence: None)
  Receive Date: 20120926
  Receipt Date: 20120926
  Transmission Date: 20140127
  Serious: Yes (Other)
  Sender: FDA-Public Use
  Company Number: AUR-APL-2012-00708

PATIENT
  Sex: Female

DRUGS (2)
  1. ALENDRONIC ACID [Suspect]
     Indication: PRODUCT USED FOR UNKNOWN INDICATION
     Dosage: 0.1429 DOSAGE FORMS (1 DOSAGE FORMS, 1 IN 1 WK), ORAL?
     Route: 048
  2. PEPCID (FAMOTIDINE) [Concomitant]

REACTIONS (1)
  - Gastrooesophageal reflux disease [None]
